FAERS Safety Report 17851710 (Version 1)
Quarter: 2020Q2

REPORT INFORMATION
  Report Type: Spontaneous
  Country: JP (occurrence: JP)
  Receive Date: 20200602
  Receipt Date: 20200602
  Transmission Date: 20200714
  Serious: Yes (Hospitalization, Other)
  Sender: FDA-Public Use
  Company Number: JP-ASTRAZENECA-2020SE69790

PATIENT

DRUGS (1)
  1. SYMBICORT [Suspect]
     Active Substance: BUDESONIDE\FORMOTEROL FUMARATE DIHYDRATE
     Dosage: 4 PUFFS IN THE MORNING AND 4 PUFFS IN THE EVENING, FOR A TOTAL OF 8 PUFFS; TWO TIMES A DAY
     Route: 055

REACTIONS (1)
  - Cerebral haemorrhage [Unknown]
